FAERS Safety Report 13658105 (Version 1)
Quarter: 2017Q2

REPORT INFORMATION
  Report Type: Report from Study
  Country: US (occurrence: US)
  Receive Date: 20170616
  Receipt Date: 20170616
  Transmission Date: 20170830
  Serious: Yes (Death)
  Sender: FDA-Public Use
  Company Number: US-TORRENT-00003060

PATIENT
  Age: 72 Year
  Sex: Female

DRUGS (6)
  1. IBUPROFEN. [Suspect]
     Active Substance: IBUPROFEN
  2. ACETAMINOPHEN. [Suspect]
     Active Substance: ACETAMINOPHEN
  3. SERTRALINE [Suspect]
     Active Substance: SERTRALINE HYDROCHLORIDE
  4. WARFARIN [Suspect]
     Active Substance: WARFARIN
  5. NAPROXEN. [Suspect]
     Active Substance: NAPROXEN
  6. ALCOHOL. [Suspect]
     Active Substance: ALCOHOL

REACTIONS (3)
  - Toxicity to various agents [Fatal]
  - Cardio-respiratory arrest [Fatal]
  - Completed suicide [Fatal]
